FAERS Safety Report 9454326 (Version 5)
Quarter: 2015Q2

REPORT INFORMATION
  Report Type: Report from Study
  Country: BR (occurrence: BR)
  Receive Date: 20130812
  Receipt Date: 20150602
  Transmission Date: 20150821
  Serious: Yes (Other)
  Sender: FDA-Public Use
  Company Number: PHHY2013BR084598

PATIENT
  Sex: Female
  Weight: 78 kg

DRUGS (6)
  1. CABERGOLINA [Concomitant]
     Active Substance: CABERGOLINE
     Indication: PRODUCT USED FOR UNKNOWN INDICATION
     Route: 065
  2. AMITRIPTYLIN [Concomitant]
     Active Substance: AMITRIPTYLINE
     Indication: APPETITE DISORDER
     Dosage: 2 DF, QD (AT NIGHT)
     Route: 048
  3. ENDOFOLIN [Concomitant]
     Active Substance: FOLIC ACID
     Indication: PRODUCT USED FOR UNKNOWN INDICATION
     Dosage: UNK UNK, QD
     Route: 065
  4. SANDOSTATIN LAR DEPOT [Suspect]
     Active Substance: OCTREOTIDE ACETATE
     Indication: ACRAL OVERGROWTH
     Dosage: 1 DF (AMPOULE OF 30 MG), QMO
     Route: 030
     Dates: start: 1998
  5. AMITRIPTYLIN [Concomitant]
     Active Substance: AMITRIPTYLINE
     Indication: SLEEP DISORDER
  6. DOSTINEX [Concomitant]
     Active Substance: CABERGOLINE
     Indication: ACROMEGALY
     Dosage: 1 DF, TIW
     Route: 048

REACTIONS (20)
  - Calcium deficiency [Recovered/Resolved]
  - Aphasia [Recovering/Resolving]
  - Dysarthria [Recovering/Resolving]
  - Bone cancer [Not Recovered/Not Resolved]
  - Metastases to bone [Not Recovered/Not Resolved]
  - Pain [Not Recovered/Not Resolved]
  - Blood cholesterol abnormal [Not Recovered/Not Resolved]
  - Bone neoplasm [Recovered/Resolved]
  - Seizure [Unknown]
  - Spinal pain [Recovered/Resolved]
  - Lung neoplasm malignant [Recovered/Resolved]
  - Brain oedema [Recovering/Resolving]
  - Brain neoplasm [Not Recovered/Not Resolved]
  - Confusional state [Unknown]
  - Dysgraphia [Recovering/Resolving]
  - Metastasis [Recovered/Resolved]
  - Osteoporosis [Recovered/Resolved]
  - Delirium [Recovered/Resolved]
  - Hallucination [Recovered/Resolved]
  - Speech disorder [Recovering/Resolving]

NARRATIVE: CASE EVENT DATE: 2011
